FAERS Safety Report 5711707-8 (Version None)
Quarter: 2008Q2

REPORT INFORMATION
  Report Type: 
  Country: None (occurrence: None)
  Receive Date: 20080416
  Receipt Date: 20080402
  Transmission Date: 20081010
  Serious: Yes (Hospitalization)
  Sender: FDA-Public Use
  Company Number: VNL_00972_2008

PATIENT
  Sex: Female

DRUGS (3)
  1. APO-GO (APO-GO PFS 5 MG/ML SOLUTION FOR INFUSION PRE-FILLED SYRINGE - [Suspect]
     Indication: PARKINSON'S DISEASE
     Dosage: (42 MG PER DAY FOR UNKNOWN SUBCUTANEOUS
     Route: 058
     Dates: start: 20061201
  2. APO-GO (APO-GO PEN - APOMORPHINE HYDROCHLORIDE) [Suspect]
     Indication: PARKINSON'S DISEASE
     Dosage: (DF SUBCUTANEOUS)
     Route: 058
  3. OTHER MEDICATIONS FOR PARKINSON'S DISEASE [Concomitant]

REACTIONS (7)
  - ABDOMINAL DISTENSION [None]
  - HALLUCINATIONS, MIXED [None]
  - INCORRECT DOSE ADMINISTERED [None]
  - INFUSION SITE MASS [None]
  - SKIN NODULE [None]
  - SOCIAL PROBLEM [None]
  - VISUAL ACUITY REDUCED [None]
